FAERS Safety Report 13795722 (Version 2)
Quarter: 2017Q4

REPORT INFORMATION
  Report Type: Spontaneous
  Country: US (occurrence: US)
  Receive Date: 20170726
  Receipt Date: 20171006
  Transmission Date: 20180320
  Serious: Yes (Other)
  Sender: FDA-Public Use
  Company Number: US-AMGEN-USASP2017111080

PATIENT
  Age: 52 Year
  Sex: Female

DRUGS (4)
  1. VITAMIN D [Concomitant]
     Active Substance: CHOLECALCIFEROL
     Dosage: UNK
  2. PREDNISONE. [Concomitant]
     Active Substance: PREDNISONE
     Dosage: UNK (TAPERING OFF)
  3. ENBREL [Suspect]
     Active Substance: ETANERCEPT
     Indication: RHEUMATOID ARTHRITIS
     Dosage: UNK UNK, QWK
     Route: 065
     Dates: start: 201706
  4. TURMERIC [Concomitant]
     Active Substance: HERBALS\TURMERIC
     Dosage: UNK

REACTIONS (11)
  - Product storage error [Unknown]
  - Malaise [Recovering/Resolving]
  - Pain [Recovering/Resolving]
  - Oropharyngeal pain [Recovering/Resolving]
  - Drug effect decreased [Unknown]
  - Hypersomnia [Recovering/Resolving]
  - Rheumatoid arthritis [Unknown]
  - Headache [Recovering/Resolving]
  - Fatigue [Recovering/Resolving]
  - Loss of personal independence in daily activities [Recovering/Resolving]
  - Pyrexia [Recovering/Resolving]

NARRATIVE: CASE EVENT DATE: 2017
